FAERS Safety Report 5931248-2 (Version None)
Quarter: 2008Q4

REPORT INFORMATION
  Report Type: 
  Country: None (occurrence: None)
  Receive Date: 20081024
  Receipt Date: 20081024
  Transmission Date: 20090506
  Serious: Yes (Hospitalization)
  Sender: FDA-Public Use
  Company Number: None

PATIENT
  Sex: Male
  Weight: 70 kg

DRUGS (6)
  1. BORTEZOMIB [Suspect]
     Indication: MANTLE CELL LYMPHOMA
     Dosage: 2.5 X 2 IV
     Route: 042
     Dates: start: 20060123, end: 20060126
  2. RITUXIMAB [Concomitant]
     Indication: MANTLE CELL LYMPHOMA
     Dosage: 715 X 1 IV
     Route: 042
     Dates: start: 20060123
  3. CYCLOPHOSPHAMIDE [Suspect]
     Indication: MANTLE CELL LYMPHOMA
     Dosage: 570 MG X 6 IV
     Route: 042
     Dates: start: 20060123, end: 20060125
  4. DOXORUBICIN HCL [Suspect]
     Indication: MANTLE CELL LYMPHOMA
     Dosage: 48 MG X 2 IV
     Route: 042
     Dates: start: 20060123, end: 20060124
  5. VINCRISTINE [Suspect]
     Indication: MANTLE CELL LYMPHOMA
     Dosage: 2 MG X 1 IV
     Route: 042
     Dates: start: 20060123
  6. DEXAMETHASONE TAB [Suspect]
     Indication: MANTLE CELL LYMPHOMA
     Dosage: 40 MG X 4 PO
     Route: 048
     Dates: start: 20060123, end: 20060126

REACTIONS (4)
  - DEHYDRATION [None]
  - HYPONATRAEMIA [None]
  - HYPOPHAGIA [None]
  - NAUSEA [None]
